FAERS Safety Report 15048562 (Version 1)
Quarter: 2018Q2

REPORT INFORMATION
  Report Type: Spontaneous
  Country: CA (occurrence: CA)
  Receive Date: 20180622
  Receipt Date: 20180622
  Transmission Date: 20180711
  Serious: Yes (Other)
  Sender: FDA-Public Use
  Company Number: CA-ABBVIE-18K-028-2390437-00

PATIENT
  Age: 60 Year
  Sex: Female
  Weight: 78 kg

DRUGS (19)
  1. ENBREL [Suspect]
     Active Substance: ETANERCEPT
     Indication: PRODUCT USED FOR UNKNOWN INDICATION
     Route: 058
  2. METHOTREXATE. [Suspect]
     Active Substance: METHOTREXATE
     Indication: PRODUCT USED FOR UNKNOWN INDICATION
     Route: 058
     Dates: start: 1991
  3. DOCUSATE SODIUM. [Concomitant]
     Active Substance: DOCUSATE SODIUM
     Indication: PRODUCT USED FOR UNKNOWN INDICATION
  4. SULFASALAZINE. [Concomitant]
     Active Substance: SULFASALAZINE
     Indication: PRODUCT USED FOR UNKNOWN INDICATION
  5. GOLD [Suspect]
     Active Substance: GOLD
     Indication: PRODUCT USED FOR UNKNOWN INDICATION
     Route: 065
  6. ACTEMRA [Suspect]
     Active Substance: TOCILIZUMAB
     Indication: PRODUCT USED FOR UNKNOWN INDICATION
     Route: 058
  7. TOBRAMYCIN. [Concomitant]
     Active Substance: TOBRAMYCIN
     Indication: PRODUCT USED FOR UNKNOWN INDICATION
  8. ORENCIA [Suspect]
     Active Substance: ABATACEPT
     Indication: PRODUCT USED FOR UNKNOWN INDICATION
     Route: 058
     Dates: start: 2011
  9. SIMPONI [Suspect]
     Active Substance: GOLIMUMAB
     Indication: PRODUCT USED FOR UNKNOWN INDICATION
     Route: 058
  10. HUMIRA [Suspect]
     Active Substance: ADALIMUMAB
     Indication: PRODUCT USED FOR UNKNOWN INDICATION
     Route: 058
  11. RITUXAN [Suspect]
     Active Substance: RITUXIMAB
     Indication: PRODUCT USED FOR UNKNOWN INDICATION
     Route: 065
  12. PENICILLAMINE [Suspect]
     Active Substance: PENICILLAMINE
     Indication: PRODUCT USED FOR UNKNOWN INDICATION
     Route: 065
  13. ELAVIL [Concomitant]
     Active Substance: AMITRIPTYLINE HYDROCHLORIDE
     Indication: PRODUCT USED FOR UNKNOWN INDICATION
  14. PREDNISONE. [Concomitant]
     Active Substance: PREDNISONE
     Indication: PRODUCT USED FOR UNKNOWN INDICATION
  15. AZATHIOPRINE. [Concomitant]
     Active Substance: AZATHIOPRINE
     Indication: PRODUCT USED FOR UNKNOWN INDICATION
  16. ARAVA [Suspect]
     Active Substance: LEFLUNOMIDE
     Indication: PRODUCT USED FOR UNKNOWN INDICATION
     Route: 048
  17. DOXYCYCLINE. [Concomitant]
     Active Substance: DOXYCYCLINE
     Indication: PRODUCT USED FOR UNKNOWN INDICATION
  18. CYCLOPHOSPHAMIDE. [Concomitant]
     Active Substance: CYCLOPHOSPHAMIDE
     Indication: PRODUCT USED FOR UNKNOWN INDICATION
  19. ENBREL [Suspect]
     Active Substance: ETANERCEPT
     Route: 058
     Dates: start: 201104

REACTIONS (16)
  - Diarrhoea [Unknown]
  - Chest pain [Unknown]
  - Drug ineffective [Unknown]
  - Acute kidney injury [Unknown]
  - Anti-neutrophil cytoplasmic antibody positive vasculitis [Unknown]
  - Rheumatoid arthritis [Unknown]
  - Drug hypersensitivity [Unknown]
  - Nausea [Unknown]
  - Arthralgia [Unknown]
  - Inflammation [Unknown]
  - Headache [Unknown]
  - Pain [Unknown]
  - Drug intolerance [Unknown]
  - Musculoskeletal stiffness [Unknown]
  - Proteinuria [Unknown]
  - Joint swelling [Unknown]

NARRATIVE: CASE EVENT DATE: 20180525
